FAERS Safety Report 4847892-X (Version None)
Quarter: 2005Q4

REPORT INFORMATION
  Report Type: 
  Country: None (occurrence: None)
  Receive Date: 20051206
  Receipt Date: 20051123
  Transmission Date: 20060501
  Serious: Yes (Other)
  Sender: FDA-Public Use
  Company Number: 2005160613

PATIENT
  Sex: Female
  Weight: 49.8957 kg

DRUGS (2)
  1. FLAGYL [Suspect]
     Indication: PARASITE URINE TEST POSITIVE
     Dosage: ORAL
     Route: 048
     Dates: start: 20051117, end: 20051123
  2. LOMOTIL [Suspect]
     Indication: DIARRHOEA
     Dosage: ORAL
     Route: 048
     Dates: start: 20051101

REACTIONS (4)
  - DIARRHOEA [None]
  - INFECTION PARASITIC [None]
  - OEDEMA PERIPHERAL [None]
  - SKIN EXFOLIATION [None]
